FAERS Safety Report 9275789 (Version 1)
Quarter: 2012Q4

REPORT INFORMATION
  Report Type: Spontaneous
  Country: None (occurrence: None)
  Receive Date: 20121109
  Receipt Date: 20121109
  Transmission Date: 20130627
  Serious: Yes (Death, Other)
  Sender: FDA-Public Use
  Company Number: 2011S1000660

PATIENT
  Age: 73 Year
  Sex: Male

DRUGS (1)
  1. CUBICIN [Suspect]
     Indication: ENDOCARDITIS
     Route: 065
     Dates: start: 20110801, end: 20110822

REACTIONS (3)
  - Multi-organ failure [None]
  - Sepsis [None]
  - Treatment failure [None]
